FAERS Safety Report 12372540 (Version 1)
Quarter: 2016Q2

REPORT INFORMATION
  Report Type: Spontaneous
  Country: US (occurrence: US)
  Receive Date: 20160516
  Receipt Date: 20160516
  Transmission Date: 20160815
  Serious: Yes (Other)
  Sender: FDA-Public Use
  Company Number: US-009507513-0902USA00943

PATIENT
  Age: 58 Year
  Sex: Male

DRUGS (2)
  1. JANUMET [Suspect]
     Active Substance: METFORMIN HYDROCHLORIDE\SITAGLIPTIN PHOSPHATE
     Indication: TYPE 2 DIABETES MELLITUS
     Dosage: 500 MG-50
     Route: 048
     Dates: start: 200812, end: 20090122
  2. JANUVIA [Suspect]
     Active Substance: SITAGLIPTIN PHOSPHATE
     Dosage: UNK
     Route: 048
     Dates: start: 20120410, end: 201206

REACTIONS (9)
  - Apathy [Recovered/Resolved]
  - Malaise [Recovered/Resolved]
  - Pancreatic carcinoma [Unknown]
  - Dizziness [Recovered/Resolved]
  - Nasal congestion [Recovered/Resolved]
  - Limb discomfort [Recovered/Resolved]
  - Inappropriate schedule of drug administration [Unknown]
  - Nausea [Recovered/Resolved]
  - Asthenia [Recovered/Resolved]

NARRATIVE: CASE EVENT DATE: 20120513
